FAERS Safety Report 4840118-2 (Version None)
Quarter: 2005Q4

REPORT INFORMATION
  Report Type: 
  Country: None (occurrence: None)
  Receive Date: 20051125
  Receipt Date: 20051108
  Transmission Date: 20060501
  Serious: Yes (Hospitalization, Other)
  Sender: FDA-Public Use
  Company Number: USA-2004-0016319

PATIENT
  Sex: Female

DRUGS (3)
  1. OXYCONTIN [Suspect]
     Indication: PAIN
     Dosage: 10 MG, BID,
  2. ZOLOFT [Concomitant]
  3. PERCOCET [Concomitant]

REACTIONS (41)
  - ANXIETY [None]
  - ASTHENIA [None]
  - CLONUS [None]
  - DELUSIONAL DISORDER, UNSPECIFIED TYPE [None]
  - DEPRESSION [None]
  - DERMATITIS [None]
  - DIFFICULTY IN WALKING [None]
  - DISTURBANCE IN ATTENTION [None]
  - DRUG DEPENDENCE [None]
  - DRUG WITHDRAWAL SYNDROME [None]
  - DRY EYE [None]
  - DYSMENORRHOEA [None]
  - DYSPAREUNIA [None]
  - DYSPNOEA [None]
  - FALLOPIAN TUBE DISORDER [None]
  - FATIGUE [None]
  - HAEMATOCRIT DECREASED [None]
  - HERNIA [None]
  - HYPOAESTHESIA [None]
  - INSOMNIA [None]
  - KERATOCONJUNCTIVITIS SICCA [None]
  - LIBIDO DECREASED [None]
  - MEMORY IMPAIRMENT [None]
  - MENTAL IMPAIRMENT [None]
  - MICTURITION URGENCY [None]
  - MIGRAINE [None]
  - NIGHTMARE [None]
  - NOCTURIA [None]
  - OBSESSIVE-COMPULSIVE DISORDER [None]
  - PAIN [None]
  - PARANOIA [None]
  - PELVIC MASS [None]
  - PELVIC PERITONEAL ADHESIONS [None]
  - PHOTOPHOBIA [None]
  - POSTOPERATIVE INFECTION [None]
  - PROCEDURAL PAIN [None]
  - SEDATION [None]
  - SENSORY LOSS [None]
  - SOMNOLENCE [None]
  - URGE INCONTINENCE [None]
  - UTERINE LEIOMYOMA [None]
